FAERS Safety Report 4756338-1 (Version None)
Quarter: 2005Q3

REPORT INFORMATION
  Report Type: 
  Country: None (occurrence: None)
  Receive Date: 20050830
  Receipt Date: 20050602
  Transmission Date: 20060218
  Serious: No
  Sender: FDA-Public Use
  Company Number: US-GLAXOSMITHKLINE-A0560954A

PATIENT
  Age: 48 Year
  Sex: Female

DRUGS (6)
  1. WELLBUTRIN XL [Suspect]
     Dosage: 150MG PER DAY
     Route: 048
     Dates: start: 20050401
  2. CLONAZEPAM [Concomitant]
  3. PRILOSEC [Concomitant]
  4. HORMONE REPLACEMENT THERAPY [Concomitant]
  5. ZETIA [Concomitant]
  6. BENAZEPRIL [Concomitant]

REACTIONS (5)
  - AGITATION [None]
  - ANXIETY [None]
  - DIZZINESS [None]
  - HEADACHE [None]
  - NAUSEA [None]
